FAERS Safety Report 21397160 (Version 1)
Quarter: 2022Q3

REPORT INFORMATION
  Report Type: Spontaneous
  Country: US (occurrence: US)
  Receive Date: 20220930
  Receipt Date: 20220930
  Transmission Date: 20221027
  Serious: No
  Sender: FDA-Public Use
  Company Number: US-PFIZER INC-202201195520

PATIENT
  Age: 69 Year
  Sex: Male
  Weight: 108.41 kg

DRUGS (1)
  1. VFEND [Suspect]
     Active Substance: VORICONAZOLE
     Indication: Blastomycosis
     Dosage: 300 MG, 2X/DAY (AT 6AM AND 6PM EVERY DAY)
     Route: 048
     Dates: start: 2022

REACTIONS (2)
  - Memory impairment [Unknown]
  - Off label use [Unknown]
